FAERS Safety Report 8836833 (Version 4)
Quarter: 2013Q4

REPORT INFORMATION
  Report Type: Spontaneous
  Country: US (occurrence: US)
  Receive Date: 20121012
  Receipt Date: 20131105
  Transmission Date: 20140711
  Serious: Yes (Other)
  Sender: FDA-Public Use
  Company Number: US-PFIZER INC-2012252103

PATIENT
  Age: 52 Year
  Sex: Female
  Weight: 77.1 kg

DRUGS (7)
  1. CHANTIX [Suspect]
     Indication: SMOKING CESSATION THERAPY
     Dosage: UNK
     Dates: start: 2009, end: 2009
  2. CHANTIX [Suspect]
     Dosage: 1 MG, 2X/DAY
     Dates: start: 201209, end: 201209
  3. CHANTIX [Suspect]
     Dosage: UNK
     Dates: start: 201209, end: 2012
  4. NEURONTIN [Suspect]
     Indication: PERIPHERAL NERVE INJURY
     Dosage: 400 MG, AS NEEDED
     Dates: start: 2008
  5. RANITIDINE [Concomitant]
     Indication: GASTROOESOPHAGEAL REFLUX DISEASE
     Dosage: 150 MG, DAILY
     Dates: start: 2008
  6. RANITIDINE [Concomitant]
     Indication: DYSPEPSIA
  7. GABAPENTIN [Concomitant]
     Indication: PERIPHERAL NERVE INJURY
     Dosage: 400 MG, 3X/DAY

REACTIONS (11)
  - Arthropathy [Unknown]
  - Procedural pain [Unknown]
  - Bladder disorder [Unknown]
  - Anaemia [Unknown]
  - Pain in extremity [Not Recovered/Not Resolved]
  - Middle insomnia [Not Recovered/Not Resolved]
  - Musculoskeletal discomfort [Not Recovered/Not Resolved]
  - Feeling abnormal [Not Recovered/Not Resolved]
  - Nausea [Unknown]
  - Vitamin D decreased [Unknown]
  - Tobacco user [Unknown]
